FAERS Safety Report 23942567 (Version 1)
Quarter: 2024Q2

REPORT INFORMATION
  Report Type: Spontaneous
  Country: US (occurrence: US)
  Receive Date: 20240605
  Receipt Date: 20240605
  Transmission Date: 20240715
  Serious: No
  Sender: FDA-Public Use
  Company Number: US-TAKEDA-2024TUS056522

PATIENT
  Sex: Female
  Weight: 68 kg

DRUGS (1)
  1. LIVTENCITY [Suspect]
     Active Substance: MARIBAVIR
     Indication: Renal transplant
     Dosage: 2 DOSAGE FORM, BID
     Route: 048
     Dates: start: 20240501

REACTIONS (1)
  - Pyrexia [Unknown]
